FAERS Safety Report 8491579-1 (Version None)
Quarter: 2012Q3

REPORT INFORMATION
  Report Type: 
  Country: None (occurrence: None)
  Receive Date: 20120706
  Receipt Date: 20120702
  Transmission Date: 20120928
  Serious: Yes (Death)
  Sender: FDA-Public Use
  Company Number: JP-ASTRAZENECA-2012SE45041

PATIENT

DRUGS (2)
  1. MORPHINE HYDROCHLORIDE HYDRATE [Concomitant]
     Dosage: DOSE UNKNOWN
     Route: 029
  2. MARCAINE HYDROCHLORIDE PRESERVATIVE FREE [Suspect]
     Indication: SPINAL ANAESTHESIA
     Dosage: DOSE UNKNOWN
     Route: 037

REACTIONS (1)
  - DEATH [None]
